FAERS Safety Report 10200978 (Version 1)
Quarter: 2014Q2

REPORT INFORMATION
  Report Type: Spontaneous
  Country: JP (occurrence: JP)
  Receive Date: 20140528
  Receipt Date: 20140528
  Transmission Date: 20141212
  Serious: Yes (Other)
  Sender: FDA-Public Use
  Company Number: PHHY2014JP063699

PATIENT
  Sex: Female

DRUGS (2)
  1. TASIGNA [Suspect]
     Indication: CHRONIC MYELOID LEUKAEMIA
     Route: 048
  2. TASIGNA [Suspect]
     Dosage: 150 MG, QD

REACTIONS (4)
  - Myoclonus [Unknown]
  - VIIth nerve paralysis [Unknown]
  - Neuralgia [Not Recovered/Not Resolved]
  - Hepatic function abnormal [Unknown]
